FAERS Safety Report 15195581 (Version 1)
Quarter: 2018Q3

REPORT INFORMATION
  Report Type: Spontaneous
  Country: FR (occurrence: FR)
  Receive Date: 20180725
  Receipt Date: 20180725
  Transmission Date: 20181010
  Serious: Yes (Hospitalization, Other)
  Sender: FDA-Public Use
  Company Number: FR-BRISTOL-MYERS SQUIBB COMPANY-BMS-2018-066989

PATIENT
  Age: 26 Year
  Sex: Male

DRUGS (3)
  1. ARACYTINE [Suspect]
     Active Substance: CYTARABINE
     Indication: CHRONIC MYELOID LEUKAEMIA
     Route: 042
     Dates: start: 20180613, end: 20180619
  2. SPRYCEL [Suspect]
     Active Substance: DASATINIB
     Indication: CHRONIC MYELOID LEUKAEMIA
     Route: 048
     Dates: start: 20180620, end: 20180626
  3. DAUNORUBICINE [Suspect]
     Active Substance: DAUNORUBICIN
     Indication: CHRONIC MYELOID LEUKAEMIA
     Dosage: 180 MG, UNK
     Route: 042
     Dates: start: 20180617, end: 20180619

REACTIONS (3)
  - Haematemesis [Recovered/Resolved]
  - Aplasia [Recovering/Resolving]
  - Oesophagitis [Recovering/Resolving]

NARRATIVE: CASE EVENT DATE: 20180626
